FAERS Safety Report 7712049-1 (Version None)
Quarter: 2011Q3

REPORT INFORMATION
  Report Type: 
  Country: None (occurrence: None)
  Receive Date: 20110826
  Receipt Date: 20110824
  Transmission Date: 20111222
  Serious: Yes (Death)
  Sender: FDA-Public Use
  Company Number: BR-PFIZER INC-2011196120

PATIENT
  Age: 85 Year
  Sex: Male

DRUGS (2)
  1. GENOTROPIN [Suspect]
     Indication: WOUND
  2. GENOTROPIN [Suspect]
     Indication: OFF LABEL USE
     Route: 058

REACTIONS (1)
  - MULTI-ORGAN FAILURE [None]
